FAERS Safety Report 8247421-7 (Version None)
Quarter: 2012Q1

REPORT INFORMATION
  Report Type: 
  Country: None (occurrence: None)
  Receive Date: 20120330
  Receipt Date: 20120320
  Transmission Date: 20120608
  Serious: Yes (Hospitalization, Other)
  Sender: FDA-Public Use
  Company Number: US-ABBOTT-12P-163-0917242-00

PATIENT
  Age: 44 Year
  Sex: Female

DRUGS (5)
  1. HUMIRA [Suspect]
     Indication: CROHN'S DISEASE
     Dates: start: 20090101
  2. AMBIEN [Concomitant]
     Indication: INSOMNIA
     Dosage: EVERY OTHER NIGHT AS NEEDED
  3. PHENERGAN HCL [Concomitant]
     Indication: NAUSEA
  4. LEXAPRO [Concomitant]
     Indication: ANXIETY
  5. MULTI-VITAMIN [Concomitant]
     Indication: PRODUCT USED FOR UNKNOWN INDICATION

REACTIONS (13)
  - INJECTION SITE ERYTHEMA [None]
  - INJECTION SITE SWELLING [None]
  - INJECTION SITE DISCOLOURATION [None]
  - ARTHRALGIA [None]
  - JOINT INJURY [None]
  - HYSTERECTOMY [None]
  - CONSTIPATION [None]
  - PAIN [None]
  - INJECTION SITE PRURITUS [None]
  - INJECTION SITE PAIN [None]
  - HAEMORRHAGE [None]
  - CROHN'S DISEASE [None]
  - MENORRHAGIA [None]
